FAERS Safety Report 17594115 (Version 1)
Quarter: 2020Q1

REPORT INFORMATION
  Report Type: Spontaneous
  Country: JP (occurrence: JP)
  Receive Date: 20200328
  Receipt Date: 20200328
  Transmission Date: 20200409
  Serious: Yes (Hospitalization)
  Sender: FDA-Public Use
  Company Number: JP-UNITED THERAPEUTICS-UNT-2015-002856

PATIENT
  Age: 57 Year
  Sex: Female
  Weight: 57 kg

DRUGS (16)
  1. REMODULIN [Suspect]
     Active Substance: TREPROSTINIL
     Dosage: 0.1015 ?G/KG, CONTINUING
     Route: 058
  2. REMODULIN [Suspect]
     Active Substance: TREPROSTINIL
     Dosage: 0.142 ?G/KG, CONTINUING
     Route: 058
  3. TRACLEER [Concomitant]
     Active Substance: BOSENTAN
     Indication: PULMONARY ARTERIAL HYPERTENSION
     Dosage: UNK
     Route: 048
     Dates: start: 201012, end: 20161209
  4. REMODULIN [Suspect]
     Active Substance: TREPROSTINIL
     Indication: PULMONARY ARTERIAL HYPERTENSION
     Dosage: 0.00298 ?G/KG, CONTINUING
     Route: 058
     Dates: start: 20150302
  5. REVATIO [Concomitant]
     Active Substance: SILDENAFIL CITRATE
     Indication: PULMONARY ARTERIAL HYPERTENSION
     Dosage: UNK
     Route: 048
     Dates: start: 201110
  6. OPSUMIT [Concomitant]
     Active Substance: MACITENTAN
     Indication: PULMONARY ARTERIAL HYPERTENSION
     Dosage: UNK
     Route: 048
     Dates: start: 20161210
  7. REMODULIN [Suspect]
     Active Substance: TREPROSTINIL
     Dosage: 0.153 ?G/KG, CONTINUING
     Route: 058
  8. FUROSEMIDE. [Concomitant]
     Active Substance: FUROSEMIDE
     Indication: PULMONARY ARTERIAL HYPERTENSION
     Dosage: UNK
     Route: 048
  9. REMODULIN [Suspect]
     Active Substance: TREPROSTINIL
     Dosage: 0.150 ?G/KG, CONTINUING
     Route: 058
  10. REMODULIN [Suspect]
     Active Substance: TREPROSTINIL
     Indication: PULMONARY ARTERIAL HYPERTENSION
     Dosage: 0.08 ?G/KG, CONTINUING
     Route: 041
     Dates: start: 20200109
  11. CARELOAD LA [Concomitant]
     Active Substance: BERAPROST SODIUM
     Indication: PULMONARY ARTERIAL HYPERTENSION
     Dosage: UNK
     Route: 048
     Dates: start: 201404, end: 20150302
  12. REMODULIN [Suspect]
     Active Substance: TREPROSTINIL
     Dosage: 0.07-0.08 ?G/KG, CONTINUING
     Route: 058
  13. WARFARIN [Concomitant]
     Active Substance: WARFARIN
     Indication: PULMONARY ARTERIAL HYPERTENSION
     Dosage: UNK
     Route: 048
     Dates: end: 20161208
  14. REMODULIN [Suspect]
     Active Substance: TREPROSTINIL
     Dosage: 0.100 ?G/KG, CONTINUING
     Route: 058
     Dates: end: 20200109
  15. REMODULIN [Suspect]
     Active Substance: TREPROSTINIL
     Dosage: 0.0183 ?G/KG, CONTINUING
     Route: 058
  16. REMODULIN [Suspect]
     Active Substance: TREPROSTINIL
     Dosage: 0.100 ?G/KG, CONTINUING
     Route: 041

REACTIONS (12)
  - Infusion site swelling [Not Recovered/Not Resolved]
  - Infusion site erosion [Unknown]
  - Infusion site warmth [Not Recovered/Not Resolved]
  - Infusion site induration [Recovered/Resolved]
  - Pyrexia [Recovered/Resolved]
  - Infusion site erythema [Not Recovered/Not Resolved]
  - Infusion site rash [Recovering/Resolving]
  - Infusion site pruritus [Recovering/Resolving]
  - Device related infection [Unknown]
  - Urticaria [Recovering/Resolving]
  - Infusion site pain [Not Recovered/Not Resolved]
  - Infusion site discharge [Recovering/Resolving]

NARRATIVE: CASE EVENT DATE: 20150305
